FAERS Safety Report 9812867 (Version 1)
Quarter: 2014Q1

REPORT INFORMATION
  Report Type: Spontaneous
  Country: US (occurrence: US)
  Receive Date: 20140113
  Receipt Date: 20140113
  Transmission Date: 20141002
  Serious: No
  Sender: FDA-Public Use
  Company Number: US-PFIZER INC-2014010252

PATIENT
  Age: 25 Year
  Sex: Female
  Weight: 62.13 kg

DRUGS (1)
  1. CHANTIX [Suspect]
     Indication: SMOKING CESSATION THERAPY
     Dosage: 0.5 MG, UNK
     Dates: start: 20140106, end: 20140109

REACTIONS (3)
  - Pyrexia [Recovering/Resolving]
  - Nasopharyngitis [Unknown]
  - Influenza [Unknown]
